FAERS Safety Report 7470636-2 (Version None)
Quarter: 2011Q2

REPORT INFORMATION
  Report Type: 
  Country: None (occurrence: None)
  Receive Date: 20110429
  Receipt Date: 20110419
  Transmission Date: 20111010
  Serious: Yes (Disabling)
  Sender: FDA-Public Use
  Company Number: 900557

PATIENT
  Sex: Female
  Weight: 0.59 kg

DRUGS (1)
  1. VANCOMYCIN HYDROCHLORIDE [Suspect]
     Indication: SEPSIS

REACTIONS (2)
  - NEUROPATHY PERIPHERAL [None]
  - EAR DISORDER [None]
